FAERS Safety Report 24895256 (Version 1)
Quarter: 2025Q1

REPORT INFORMATION
  Report Type: Spontaneous
  Country: US (occurrence: None)
  Receive Date: 20250128
  Receipt Date: 20250128
  Transmission Date: 20250408
  Serious: Yes (Other)
  Sender: FDA-CTU
  Company Number: None

PATIENT
  Sex: Female
  Weight: 81 kg

DRUGS (5)
  1. TRULICITY [Suspect]
     Active Substance: DULAGLUTIDE
     Indication: Diabetes mellitus
  2. ALTACE [Concomitant]
     Active Substance: RAMIPRIL
  3. LASIX [Concomitant]
     Active Substance: FUROSEMIDE
  4. GLIPIZIDE [Concomitant]
     Active Substance: GLIPIZIDE
  5. PLAVIX [Concomitant]
     Active Substance: CLOPIDOGREL BISULFATE

REACTIONS (3)
  - Monoplegia [None]
  - Monoplegia [None]
  - Hypoaesthesia [None]
